FAERS Safety Report 13842956 (Version 1)
Quarter: 2017Q3

REPORT INFORMATION
  Report Type: Spontaneous
  Country: ZA (occurrence: ZA)
  Receive Date: 20170808
  Receipt Date: 20170808
  Transmission Date: 20171127
  Serious: Yes (Hospitalization, Other)
  Sender: FDA-Public Use
  Company Number: ZA-PFIZER INC-2017336769

PATIENT
  Age: 57 Year
  Sex: Male

DRUGS (4)
  1. MERONEM [Suspect]
     Active Substance: MEROPENEM
     Dosage: UNK
     Dates: start: 20160124
  2. VFEND [Suspect]
     Active Substance: VORICONAZOLE
     Indication: HUMAN BOCAVIRUS INFECTION
     Dosage: 400 MG, 2X/DAY
     Route: 048
     Dates: start: 20160127
  3. KLACID /00984601/ [Suspect]
     Active Substance: CLARITHROMYCIN
     Dosage: UNK
     Dates: start: 20170124
  4. BACTRIM [Suspect]
     Active Substance: SULFAMETHOXAZOLE\TRIMETHOPRIM
     Dosage: UNK
     Dates: start: 20160127

REACTIONS (20)
  - Pyrexia [Unknown]
  - Pneumonia [Unknown]
  - Blood creatinine decreased [Unknown]
  - Haemoglobin decreased [Unknown]
  - White blood cell count decreased [Unknown]
  - Off label use [Unknown]
  - Red blood cell count decreased [Unknown]
  - Alanine aminotransferase increased [Unknown]
  - Blood albumin decreased [Unknown]
  - Procalcitonin decreased [Unknown]
  - Fungal infection [Unknown]
  - Chest pain [Unknown]
  - Protein total decreased [Unknown]
  - Normocytic anaemia [Unknown]
  - Neutrophil count decreased [Unknown]
  - Aspartate aminotransferase increased [Unknown]
  - Lymphocyte count decreased [Unknown]
  - Acute sinusitis [Unknown]
  - Bilirubin conjugated increased [Unknown]
  - Haematocrit decreased [Unknown]
